FAERS Safety Report 8456338-4 (Version None)
Quarter: 2012Q2

REPORT INFORMATION
  Report Type: 
  Country: None (occurrence: None)
  Receive Date: 20120621
  Receipt Date: 20120618
  Transmission Date: 20120825
  Serious: Yes (Hospitalization)
  Sender: FDA-Public Use
  Company Number: US-GLAXOSMITHKLINE-A0962499A

PATIENT
  Age: 60 Year
  Sex: Male

DRUGS (1)
  1. AVANDIA [Suspect]
     Indication: DIABETES MELLITUS
     Dosage: 8MG PER DAY
     Route: 048
     Dates: start: 20010501, end: 20031101

REACTIONS (6)
  - MYOCARDIAL INFARCTION [None]
  - ANGINA UNSTABLE [None]
  - CATHETERISATION CARDIAC [None]
  - MUSCLE SPASMS [None]
  - CORONARY ARTERY DISEASE [None]
  - CORONARY ARTERY BYPASS [None]
